FAERS Safety Report 12690998 (Version 1)
Quarter: 2016Q3

REPORT INFORMATION
  Report Type: Report from Study
  Country: US (occurrence: US)
  Receive Date: 20160826
  Receipt Date: 20160826
  Transmission Date: 20161109
  Serious: No
  Sender: FDA-Public Use
  Company Number: US-AMGEN-USASL2016111567

PATIENT
  Age: 69 Year
  Sex: Female

DRUGS (2)
  1. METHOTREXATE. [Concomitant]
     Active Substance: METHOTREXATE
     Dosage: UNK
  2. ENBREL [Suspect]
     Active Substance: ETANERCEPT
     Indication: RHEUMATOID ARTHRITIS
     Dosage: ONE VIAL TWICE A WEEK
     Route: 065

REACTIONS (5)
  - Drug effect decreased [Unknown]
  - Condition aggravated [Not Recovered/Not Resolved]
  - Drug dose omission [Unknown]
  - Bone disorder [Not Recovered/Not Resolved]
  - Adverse event [Unknown]
